FAERS Safety Report 10590404 (Version 1)
Quarter: 2014Q4

REPORT INFORMATION
  Report Type: Spontaneous
  Country: US (occurrence: None)
  Receive Date: 20141117
  Receipt Date: 20141117
  Transmission Date: 20150529
  Serious: No
  Sender: FDA-Public Use
  Company Number: None

PATIENT
  Age: 39 Year
  Sex: Female
  Weight: 62.6 kg

DRUGS (1)
  1. KENALOG [Suspect]
     Active Substance: TRIAMCINOLONE ACETONIDE
     Indication: DERMATITIS ATOPIC
     Dosage: 1 INJECTION, GIVEN INTO/UNDER THE SKIN
     Dates: start: 20140214

REACTIONS (2)
  - Injection site atrophy [None]
  - Fear [None]

NARRATIVE: CASE EVENT DATE: 20140214
